FAERS Safety Report 5642683-4 (Version None)
Quarter: 2008Q1

REPORT INFORMATION
  Report Type: 
  Country: None (occurrence: None)
  Receive Date: 20080228
  Receipt Date: 20080226
  Transmission Date: 20080703
  Serious: Yes (Hospitalization)
  Sender: FDA-Public Use
  Company Number: JP-WYE-H02801308

PATIENT
  Sex: Male

DRUGS (1)
  1. HYPEN [Suspect]
     Dosage: UNSPECIFIED
     Route: 048
     Dates: start: 20070901

REACTIONS (2)
  - OEDEMA [None]
  - PLEURAL EFFUSION [None]
